FAERS Safety Report 25206299 (Version 2)
Quarter: 2025Q2

REPORT INFORMATION
  Report Type: Spontaneous
  Country: DE (occurrence: US)
  Receive Date: 20250417
  Receipt Date: 20250426
  Transmission Date: 20250716
  Serious: Yes (Other)
  Sender: AUROBINDO
  Company Number: DE-AUROBINDO-AUR-APL-2025-019384

PATIENT
  Age: 56 Year
  Sex: Male

DRUGS (1)
  1. OXACILLIN [Suspect]
     Active Substance: OXACILLIN SODIUM
     Indication: Staphylococcal sepsis
     Route: 065

REACTIONS (3)
  - Eosinophilic myocarditis [Unknown]
  - Dyspnoea [Unknown]
  - Exercise tolerance decreased [Unknown]
